FAERS Safety Report 19012131 (Version 1)
Quarter: 2021Q1

REPORT INFORMATION
  Report Type: Spontaneous
  Country: US (occurrence: US)
  Receive Date: 20210315
  Receipt Date: 20210315
  Transmission Date: 20210420
  Serious: Yes (Death)
  Sender: FDA-Public Use
  Company Number: None

PATIENT
  Age: 55 Year
  Sex: Female

DRUGS (3)
  1. TACROLIMUS 1 MG [Suspect]
     Active Substance: TACROLIMUS
     Dosage: ?          OTHER FREQUENCY:PM;?
     Route: 048
     Dates: start: 20190820
  2. MYCOPHENOLATE 250 MG [Suspect]
     Active Substance: MYCOPHENOLIC ACID
     Indication: LUNG TRANSPLANT
     Route: 048
     Dates: start: 20201016
  3. TACROLIMUS 1 MG [Suspect]
     Active Substance: TACROLIMUS
     Indication: LUNG TRANSPLANT
     Dosage: ?          OTHER FREQUENCY:AM;?
     Route: 048
     Dates: start: 20190820

REACTIONS (1)
  - Death [None]

NARRATIVE: CASE EVENT DATE: 20210220
